FAERS Safety Report 14890197 (Version 4)
Quarter: 2019Q2

REPORT INFORMATION
  Report Type: Spontaneous
  Country: US (occurrence: US)
  Receive Date: 20180514
  Receipt Date: 20190510
  Transmission Date: 20190711
  Serious: No
  Sender: FDA-Public Use
  Company Number: US-PFIZER INC-2018192077

PATIENT
  Age: 61 Year
  Sex: Male

DRUGS (2)
  1. VIAGRA [Suspect]
     Active Substance: SILDENAFIL CITRATE
     Dosage: 50 MG, AS NEEDED  [TAKE 0.5 TABLETS (50 MG) DAILY AS NEEDED]
     Route: 048
     Dates: start: 20190502
  2. VIAGRA [Suspect]
     Active Substance: SILDENAFIL CITRATE
     Indication: ERECTILE DYSFUNCTION
     Dosage: 100 MG, UNK

REACTIONS (3)
  - Renal disorder [Unknown]
  - Depressed mood [Unknown]
  - Dizziness [Unknown]
